FAERS Safety Report 17460647 (Version 3)
Quarter: 2020Q2

REPORT INFORMATION
  Report Type: Report from Study
  Country: US (occurrence: US)
  Receive Date: 20200226
  Receipt Date: 20200422
  Transmission Date: 20200713
  Serious: No
  Sender: FDA-Public Use
  Company Number: NVSC2020US054265

PATIENT
  Sex: Male

DRUGS (2)
  1. BEOVU [Suspect]
     Active Substance: BROLUCIZUMAB-DBLL
     Dosage: BOTH EYES
     Route: 065
     Dates: start: 202001
  2. BEOVU [Suspect]
     Active Substance: BROLUCIZUMAB-DBLL
     Indication: NEOVASCULAR AGE-RELATED MACULAR DEGENERATION
     Dosage: ONE EYE
     Route: 065
     Dates: start: 20191120

REACTIONS (2)
  - Hypoacusis [Unknown]
  - Eye irritation [Unknown]
